FAERS Safety Report 12187255 (Version 8)
Quarter: 2019Q1

REPORT INFORMATION
  Report Type: Report from Study
  Country: CA (occurrence: CA)
  Receive Date: 20160317
  Receipt Date: 20190314
  Transmission Date: 20190417
  Serious: Yes (Other)
  Sender: FDA-Public Use
  Company Number: CA-ROCHE-1168784

PATIENT
  Age: 71 Year
  Sex: Male
  Weight: 108.9 kg

DRUGS (18)
  1. MAALOX (CALCIUM CARBONATE) [Concomitant]
  2. HYDROCHLOROTHIAZIDE. [Concomitant]
     Active Substance: HYDROCHLOROTHIAZIDE
     Indication: HYPERTENSION
  3. ACTONEL [Concomitant]
     Active Substance: RISEDRONATE SODIUM
  4. ACETAMINOPHEN. [Concomitant]
     Active Substance: ACETAMINOPHEN
     Indication: PREMEDICATION
     Route: 048
     Dates: start: 20100914
  5. GABAPENTIN. [Concomitant]
     Active Substance: GABAPENTIN
  6. OMEGA 3 [Concomitant]
     Active Substance: OMEGA-3 FATTY ACIDS
  7. TYLENOL [Concomitant]
     Active Substance: ACETAMINOPHEN
  8. PREDNISONE. [Concomitant]
     Active Substance: PREDNISONE
  9. HYDROCHLOROTHIAZIDE. [Concomitant]
     Active Substance: HYDROCHLOROTHIAZIDE
     Indication: HYPERTENSION
  10. IRBESARTAN. [Concomitant]
     Active Substance: IRBESARTAN
  11. PANTOLOC [Concomitant]
     Active Substance: PANTOPRAZOLE SODIUM
  12. RITUXAN [Suspect]
     Active Substance: RITUXIMAB
     Indication: RHEUMATOID ARTHRITIS
     Dosage: LAST INFUSION RECEIVED ON 11/MAR/2015
     Route: 042
     Dates: start: 20100914
  13. DIPHENHYDRAMINE HCL [Concomitant]
     Active Substance: DIPHENHYDRAMINE HYDROCHLORIDE
     Indication: PREMEDICATION
     Route: 048
     Dates: start: 20100914
  14. METHYLPREDNISOLONE. [Concomitant]
     Active Substance: METHYLPREDNISOLONE
     Indication: PREMEDICATION
     Route: 042
     Dates: start: 20100914
  15. DEXILANT [Concomitant]
     Active Substance: DEXLANSOPRAZOLE
  16. DOMPERIDONE [Concomitant]
     Active Substance: DOMPERIDONE
  17. CODEINE [Concomitant]
     Active Substance: CODEINE
  18. AVAPRO [Concomitant]
     Active Substance: IRBESARTAN
     Indication: BLOOD PRESSURE MEASUREMENT

REACTIONS (14)
  - Abdominal pain [Recovering/Resolving]
  - Impaired healing [Unknown]
  - Rectal adenocarcinoma [Not Recovered/Not Resolved]
  - Colon cancer [Unknown]
  - Blood pressure systolic increased [Unknown]
  - Cough [Not Recovered/Not Resolved]
  - Feeling abnormal [Unknown]
  - Lung cancer metastatic [Not Recovered/Not Resolved]
  - Abdominal pain [Not Recovered/Not Resolved]
  - Hypotension [Unknown]
  - Body temperature decreased [Unknown]
  - Foot deformity [Unknown]
  - Diarrhoea [Recovered/Resolved]
  - Influenza [Unknown]

NARRATIVE: CASE EVENT DATE: 20121205
